FAERS Safety Report 6345474-4 (Version None)
Quarter: 2009Q3

REPORT INFORMATION
  Report Type: 
  Country: None (occurrence: None)
  Receive Date: 20090909
  Receipt Date: 20090901
  Transmission Date: 20100115
  Serious: Yes (Hospitalization, Other)
  Sender: FDA-Public Use
  Company Number: DE-ASTRAZENECA-2009SE11375

PATIENT
  Sex: Female

DRUGS (2)
  1. CRESTOR [Suspect]
     Indication: HYPERLIPIDAEMIA
     Route: 048
  2. WOBENZYM [Concomitant]

REACTIONS (5)
  - AMNESIA [None]
  - LOSS OF CONSCIOUSNESS [None]
  - NAUSEA [None]
  - PARAESTHESIA [None]
  - SOMNOLENCE [None]
